FAERS Safety Report 16761480 (Version 2)
Quarter: 2020Q3

REPORT INFORMATION
  Report Type: Other
  Country: US (occurrence: US)
  Receive Date: 20190830
  Receipt Date: 20200807
  Transmission Date: 20201102
  Serious: Yes (Other)
  Sender: FDA-Public Use
  Company Number: US-ROCHE-2389097

PATIENT
  Age: 60 Year
  Sex: Female
  Weight: 71.28 kg

DRUGS (14)
  1. BACLOFEN. [Concomitant]
     Active Substance: BACLOFEN
     Indication: MUSCLE SPASTICITY
     Dosage: 1.5 MG TABLETS (15 MG) 4 TIMES A DAY ;ONGOING: YES
     Route: 048
  2. VALIUM [Suspect]
     Active Substance: DIAZEPAM
     Indication: MUSCLE SPASTICITY
     Dosage: ONGOING: YES
     Route: 048
  3. CORTISONE [Concomitant]
     Active Substance: CORTISONE
  4. COPAXONE [Concomitant]
     Active Substance: GLATIRAMER ACETATE
  5. DALFAMPRIDINE. [Concomitant]
     Active Substance: DALFAMPRIDINE
  6. AMPYRA [Concomitant]
     Active Substance: DALFAMPRIDINE
  7. OCREVUS [Suspect]
     Active Substance: OCRELIZUMAB
     Indication: RELAPSING-REMITTING MULTIPLE SCLEROSIS
     Dosage: PREVIOUS DATE OF TREATMENT WAS 31?JUL?2018, 07?MAR?2019.?ANTICIPATED DATE OF TREATMENT: 14/AUG/2018,
     Route: 042
     Dates: start: 201809
  8. VALIUM [Suspect]
     Active Substance: DIAZEPAM
     Indication: MUSCULOSKELETAL STIFFNESS
     Dosage: ONGOING: NO
     Route: 048
     Dates: start: 2010
  9. BACLOFEN. [Concomitant]
     Active Substance: BACLOFEN
     Indication: MUSCULOSKELETAL STIFFNESS
  10. BENADRYL [Concomitant]
     Active Substance: DIPHENHYDRAMINE HYDROCHLORIDE
     Dates: start: 201809
  11. BETASERON [Concomitant]
     Active Substance: INTERFERON BETA-1B
  12. OXYBUTYNIN. [Concomitant]
     Active Substance: OXYBUTYNIN CHLORIDE
     Indication: INCONTINENCE
     Route: 048
     Dates: start: 2002
  13. CRANBERRY. [Concomitant]
     Active Substance: CRANBERRY
     Route: 048
     Dates: start: 2014
  14. TYLENOL [Concomitant]
     Active Substance: ACETAMINOPHEN
     Route: 048
     Dates: start: 201809

REACTIONS (10)
  - Feeling abnormal [Not Recovered/Not Resolved]
  - Nausea [Not Recovered/Not Resolved]
  - Immobile [Not Recovered/Not Resolved]
  - Gingival abscess [Unknown]
  - Multiple sclerosis [Not Recovered/Not Resolved]
  - Body height decreased [Not Recovered/Not Resolved]
  - Peripheral swelling [Not Recovered/Not Resolved]
  - Pyrexia [Recovered/Resolved]
  - Urinary tract infection [Recovered/Resolved with Sequelae]
  - Weight increased [Not Recovered/Not Resolved]

NARRATIVE: CASE EVENT DATE: 2019
